FAERS Safety Report 9636470 (Version 1)
Quarter: 2013Q4

REPORT INFORMATION
  Report Type: Spontaneous
  Country: US (occurrence: US)
  Receive Date: 20131021
  Receipt Date: 20131021
  Transmission Date: 20140711
  Serious: Yes (Hospitalization, Other)
  Sender: FDA-Public Use
  Company Number: US-PFIZER INC-2013300153

PATIENT
  Sex: Male

DRUGS (4)
  1. CELEBREX [Suspect]
     Indication: BACK PAIN
     Dosage: 200 MG, 3X/DAY
     Dates: end: 201310
  2. ADVIL [Interacting]
     Dosage: UNK
  3. ASPIRIN [Interacting]
     Dosage: UNK
  4. ALEVE [Interacting]
     Dosage: UNK

REACTIONS (5)
  - Drug interaction [Unknown]
  - Extra dose administered [Unknown]
  - Cerebral haemorrhage [Recovered/Resolved]
  - Dizziness [Recovered/Resolved]
  - Syncope [Recovered/Resolved]
